FAERS Safety Report 7969387-7 (Version None)
Quarter: 2011Q4

REPORT INFORMATION
  Report Type: 
  Country: None (occurrence: None)
  Receive Date: 20111211
  Receipt Date: 20050221
  Transmission Date: 20120403
  Serious: Yes (Death, Other)
  Sender: FDA-Public Use
  Company Number: PHHY2005US007055

PATIENT

DRUGS (1)
  1. EXELON [Suspect]

REACTIONS (2)
  - DEATH [None]
  - LUNG DISORDER [None]
